FAERS Safety Report 5956700-5 (Version None)
Quarter: 2008Q4

REPORT INFORMATION
  Report Type: 
  Country: None (occurrence: None)
  Receive Date: 20081031
  Receipt Date: 20080806
  Transmission Date: 20090506
  Serious: No
  Sender: FDA-Public Use
  Company Number: 2008PV036377

PATIENT
  Age: 67 Year
  Sex: Female

DRUGS (3)
  1. SYMLIN [Suspect]
     Indication: TYPE 2 DIABETES MELLITUS
     Dosage: 120 MCG;BID;SC : 60 MCG;BID;SC
     Route: 058
     Dates: start: 20080724, end: 20080805
  2. SYMLIN [Suspect]
     Indication: TYPE 2 DIABETES MELLITUS
     Dosage: 120 MCG;BID;SC : 60 MCG;BID;SC
     Route: 058
     Dates: start: 20080805
  3. INSULIN DETEMIR [Concomitant]

REACTIONS (1)
  - BLOOD GLUCOSE INCREASED [None]
